FAERS Safety Report 14077844 (Version 1)
Quarter: 2017Q4

REPORT INFORMATION
  Report Type: Spontaneous
  Country: IT (occurrence: IT)
  Receive Date: 20171012
  Receipt Date: 20171012
  Transmission Date: 20180321
  Serious: Yes (Other)
  Sender: FDA-Public Use
  Company Number: IT-ACCORD-059762

PATIENT
  Age: 74 Year
  Sex: Male

DRUGS (10)
  1. FOLINA [Concomitant]
     Active Substance: FOLIC ACID
  2. OLPREZIDE [Concomitant]
     Active Substance: HYDROCHLOROTHIAZIDE\OLMESARTAN MEDOXOMIL
  3. DIBASE [Concomitant]
     Active Substance: CHOLECALCIFEROL
  4. PANTORC [Concomitant]
     Active Substance: PANTOPRAZOLE SODIUM
  5. METHOTREXATE. [Suspect]
     Active Substance: METHOTREXATE
     Indication: RHEUMATOID ARTHRITIS
     Route: 030
     Dates: start: 20170330, end: 20170920
  6. DEFLAN [Concomitant]
     Active Substance: DEFLAZACORT
  7. TORVAST [Concomitant]
     Active Substance: ATORVASTATIN
  8. NORVASC [Concomitant]
     Active Substance: AMLODIPINE BESYLATE
  9. NORMIX [Concomitant]
     Active Substance: RIFAXIMIN
  10. TIKLID [Concomitant]
     Active Substance: TICLOPIDINE HYDROCHLORIDE

REACTIONS (2)
  - Bronchitis [Recovered/Resolved]
  - Hepatic steatosis [Unknown]

NARRATIVE: CASE EVENT DATE: 20170725
